FAERS Safety Report 10590930 (Version 1)
Quarter: 2014Q4

REPORT INFORMATION
  Report Type: Report from Study
  Country: BR (occurrence: BR)
  Receive Date: 20141118
  Receipt Date: 20141118
  Transmission Date: 20150529
  Serious: Yes (Disabling, Other)
  Sender: FDA-Public Use
  Company Number: BR-ABBVIE-14K-020-1308618-00

PATIENT
  Age: 55 Year
  Sex: Female

DRUGS (2)
  1. HUMIRA [Suspect]
     Active Substance: ADALIMUMAB
     Indication: RHEUMATOID ARTHRITIS
     Route: 058
  2. HUMIRA [Suspect]
     Active Substance: ADALIMUMAB
     Route: 058
     Dates: start: 201410

REACTIONS (5)
  - Gait disturbance [Recovering/Resolving]
  - Hand deformity [Recovering/Resolving]
  - Osteoarthritis [Unknown]
  - Bedridden [Recovering/Resolving]
  - Grip strength decreased [Recovering/Resolving]

NARRATIVE: CASE EVENT DATE: 201408
